FAERS Safety Report 14152527 (Version 1)
Quarter: 2017Q4

REPORT INFORMATION
  Report Type: Spontaneous
  Country: CH (occurrence: CH)
  Receive Date: 20171102
  Receipt Date: 20171102
  Transmission Date: 20180321
  Serious: Yes (Hospitalization)
  Sender: FDA-Public Use
  Company Number: CH-ASTRAZENECA-2017SF11137

PATIENT
  Age: 65 Year
  Sex: Male
  Weight: 64.5 kg

DRUGS (8)
  1. CRESTOR [Concomitant]
     Active Substance: ROSUVASTATIN CALCIUM
     Route: 048
  2. DALMADORM BRUCHTABLETTEN [Concomitant]
     Active Substance: FLURAZEPAM\FLURAZEPAM HYDROCHLORIDE
     Route: 048
  3. QUETIAPINE FUMARATE. [Suspect]
     Active Substance: QUETIAPINE FUMARATE
     Dosage: UNKNOWN
     Route: 048
  4. SEROPRAM (CITALOPRAM HYDROBROMIDE) [Concomitant]
     Active Substance: CITALOPRAM HYDROBROMIDE
     Route: 048
  5. METOPROLOL SUCCINATE. [Concomitant]
     Active Substance: METOPROLOL SUCCINATE
     Route: 048
  6. QUETIAPINE FUMARATE. [Suspect]
     Active Substance: QUETIAPINE FUMARATE
     Dosage: 150.0MG UNKNOWN
     Route: 048
  7. PLAVIX [Concomitant]
     Active Substance: CLOPIDOGREL BISULFATE
     Route: 048
  8. ATACAND PLUS [Concomitant]
     Active Substance: CANDESARTAN CILEXETIL\HYDROCHLOROTHIAZIDE
     Route: 048

REACTIONS (3)
  - Psychomotor skills impaired [Recovered/Resolved]
  - Somnolence [Recovered/Resolved]
  - Drug abuse [Recovered/Resolved]

NARRATIVE: CASE EVENT DATE: 2017
